FAERS Safety Report 4818004-3 (Version None)
Quarter: 2005Q4

REPORT INFORMATION
  Report Type: 
  Country: None (occurrence: None)
  Receive Date: 20051102
  Receipt Date: 20051021
  Transmission Date: 20060501
  Serious: Yes (Death, Hospitalization)
  Sender: FDA-Public Use
  Company Number: US-ROCHE-422048

PATIENT
  Age: 85 Year
  Sex: Female

DRUGS (3)
  1. CAPECITABINE [Suspect]
     Indication: COLORECTAL CANCER
     Dosage: DAY 1-14 Q 21 DAYS
     Route: 048
     Dates: start: 20050818, end: 20050922
  2. CETUXIMAB [Suspect]
     Indication: COLORECTAL CANCER
     Route: 042
     Dates: start: 20050818, end: 20050909
  3. IRINOTECAN [Suspect]
     Indication: COLORECTAL CANCER
     Route: 042
     Dates: start: 20050818, end: 20050909

REACTIONS (10)
  - ASTHENIA [None]
  - DIARRHOEA [None]
  - FAECAL INCONTINENCE [None]
  - HEART RATE INCREASED [None]
  - MALIGNANT NEOPLASM PROGRESSION [None]
  - NAUSEA [None]
  - NEOPLASM MALIGNANT [None]
  - ORAL INTAKE REDUCED [None]
  - RESPIRATORY RATE INCREASED [None]
  - VOMITING [None]
